FAERS Safety Report 14676670 (Version 1)
Quarter: 2018Q1

REPORT INFORMATION
  Report Type: Report from Study
  Country: CA (occurrence: CA)
  Receive Date: 20180324
  Receipt Date: 20180324
  Transmission Date: 20180509
  Serious: Yes (Other)
  Sender: FDA-Public Use
  Company Number: CA-AMGEN-CANSL2018038127

PATIENT
  Age: 56 Year
  Sex: Male

DRUGS (2)
  1. REPATHA [Suspect]
     Active Substance: EVOLOCUMAB
     Indication: TYPE IIA HYPERLIPIDAEMIA
     Dosage: 140 MG/ML, Q2WK
     Route: 065
     Dates: start: 20180110, end: 2018
  2. REPATHA [Suspect]
     Active Substance: EVOLOCUMAB
     Dosage: 140 MG/ML, Q3WK
     Route: 065
     Dates: start: 2018

REACTIONS (8)
  - Hypoaesthesia [Recovering/Resolving]
  - Fine motor skill dysfunction [Unknown]
  - Gait disturbance [Unknown]
  - Muscular weakness [Unknown]
  - Off label use [Unknown]
  - Balance disorder [Unknown]
  - Sciatica [Unknown]
  - Back pain [Unknown]

NARRATIVE: CASE EVENT DATE: 2018
